FAERS Safety Report 12294563 (Version 2)
Quarter: 2016Q2

REPORT INFORMATION
  Report Type: Spontaneous
  Country: IN (occurrence: IN)
  Receive Date: 20160422
  Receipt Date: 20160426
  Transmission Date: 20160815
  Serious: Yes (Other)
  Sender: FDA-Public Use
  Company Number: IN-SUN PHARMACEUTICAL INDUSTRIES LTD-2016R1-115191

PATIENT
  Age: 40 Year
  Sex: Female

DRUGS (1)
  1. FEXOFENADINE [Suspect]
     Active Substance: FEXOFENADINE\FEXOFENADINE HYDROCHLORIDE
     Indication: RHINITIS
     Dosage: 180 MG, QD
     Route: 065

REACTIONS (1)
  - Acute generalised exanthematous pustulosis [Recovered/Resolved with Sequelae]
